FAERS Safety Report 16689016 (Version 1)
Quarter: 2019Q3

REPORT INFORMATION
  Report Type: Report from Study
  Country: FR (occurrence: FR)
  Receive Date: 20190809
  Receipt Date: 20190809
  Transmission Date: 20191004
  Serious: Yes (Other)
  Sender: FDA-Public Use
  Company Number: FR-ROCHE-2365418

PATIENT
  Age: 58 Year
  Sex: Male
  Weight: 71 kg

DRUGS (5)
  1. CABOZANTINIB [Suspect]
     Active Substance: CABOZANTINIB
     Indication: TRANSITIONAL CELL CARCINOMA
     Dosage: ON 14/MAR/2019, HE RECEIVED THE MOST RECENT DOSE OF CABOZANTINIB PRIOR TO EVENT ONSET
     Route: 048
     Dates: start: 20190201
  2. KETOCONAZOLE. [Concomitant]
     Active Substance: KETOCONAZOLE
  3. ATEZOLIZUMAB. [Suspect]
     Active Substance: ATEZOLIZUMAB
     Indication: TRANSITIONAL CELL CARCINOMA
     Dosage: ON 22/FEB/2019, HE RECEIVED THE MOST RECENT DOSE OF ATEZOLIZUMAB PRIOR TO EVENT ONSET
     Route: 042
     Dates: start: 20190201
  4. TITANOREINE [CHONDRUS CRISPUS;LIDOCAINE;TITANIUM DIOXIDE;ZINC OXIDE] [Concomitant]
  5. SPASFON [PHLOROGLUCINOL;TRIMETHYLPHLOROGLUCINOL] [Concomitant]
     Active Substance: PHLOROGLUCINOL\1,3,5-TRIMETHOXYBENZENE

REACTIONS (2)
  - Cell death [Unknown]
  - Cholestasis [Unknown]

NARRATIVE: CASE EVENT DATE: 20190315
